FAERS Safety Report 4606954-2 (Version None)
Quarter: 2005Q1

REPORT INFORMATION
  Report Type: 
  Country: None (occurrence: None)
  Receive Date: 20050309
  Receipt Date: 20050224
  Transmission Date: 20050727
  Serious: Yes (Other)
  Sender: FDA-Public Use
  Company Number: 2005037725

PATIENT
  Sex: Male
  Weight: 127.0072 kg

DRUGS (9)
  1. NEURONTIN [Suspect]
     Indication: CONVULSION
     Dosage: ORAL
     Route: 048
  2. VALPROATE SODIUM [Concomitant]
  3. RISPERDAL [Concomitant]
  4. LEVOTHYROXINE SODIUM [Concomitant]
  5. GUANFACINE HYDROCHLORIDE (GUANFACINE HYDROCHLORIDE) [Concomitant]
  6. BENZTROPEINE (BENZTROPEINE) [Concomitant]
  7. QUETIAPINE FUMARATE (QUETIAPINE FUMARATE) [Concomitant]
  8. DIAZEPAM [Concomitant]
  9. VITAMINS (VITAMINS) [Concomitant]

REACTIONS (5)
  - AURA [None]
  - BODY TEMPERATURE INCREASED [None]
  - CONVULSION [None]
  - DRUG INEFFECTIVE [None]
  - PHARMACEUTICAL PRODUCT COMPLAINT [None]
